FAERS Safety Report 11595812 (Version 2)
Quarter: 2015Q4

REPORT INFORMATION
  Report Type: Spontaneous
  Country: IT (occurrence: IT)
  Receive Date: 20151006
  Receipt Date: 20151026
  Transmission Date: 20160304
  Serious: Yes (Disabling, Other)
  Sender: FDA-Public Use
  Company Number: IT-ROCHE-1642215

PATIENT
  Age: 76 Year
  Sex: Male
  Weight: 50 kg

DRUGS (10)
  1. RIFAXIMIN [Concomitant]
     Active Substance: RIFAXIMIN
     Dosage: 2 CAPSULES FOR 3 CYCLES OF 14 DAYS MONTHLY, SATRTING NEXT CYCLE ON 14/SEP.
     Route: 065
  2. PARIET [Concomitant]
     Active Substance: RABEPRAZOLE SODIUM
     Dosage: ONE TABLET IN THE MORNING
     Route: 065
  3. HARVONI [Suspect]
     Active Substance: LEDIPASVIR\SOFOSBUVIR
     Indication: CHRONIC HEPATITIS C
     Dosage: 90 MG/400 MG(HDPE) BOTTLE -28 FILM-COATED TABLETS
     Route: 048
     Dates: start: 20150625, end: 20150917
  4. CARDIOASPIRIN [Concomitant]
     Active Substance: ASPIRIN
     Dosage: ONE TABLET IN THE EVENING
     Route: 065
  5. INDERAL [Concomitant]
     Active Substance: PROPRANOLOL HYDROCHLORIDE
     Indication: HEPATIC CIRRHOSIS
     Dosage: 2 TABLETS DAILY
     Route: 048
     Dates: start: 20150601, end: 20150901
  6. PORTOLAC [Concomitant]
     Active Substance: LACTITOL
     Dosage: SACHETS DAILY
     Route: 065
  7. CARDURA [Concomitant]
     Active Substance: DOXAZOSIN MESYLATE
     Dosage: ONE TABLET IN THE MORNING
     Route: 065
  8. COPEGUS [Suspect]
     Active Substance: RIBAVIRIN
     Indication: CHRONIC HEPATITIS C
     Route: 048
     Dates: start: 20150625, end: 20150917
  9. KANRENOL [Concomitant]
     Active Substance: CANRENOATE POTASSIUM
     Dosage: ONE TABLET IN THE MORNING
     Route: 065
  10. FUROSEMIDE. [Concomitant]
     Active Substance: FUROSEMIDE
     Indication: HEPATIC CIRRHOSIS
     Route: 048
     Dates: start: 20150601, end: 20150901

REACTIONS (3)
  - Cognitive disorder [Not Recovered/Not Resolved]
  - Cerebral ischaemia [Recovered/Resolved]
  - Anaemia [Unknown]

NARRATIVE: CASE EVENT DATE: 20150721
